FAERS Safety Report 5049296-6 (Version None)
Quarter: 2006Q3

REPORT INFORMATION
  Report Type: 
  Country: None (occurrence: None)
  Receive Date: 20060712
  Receipt Date: 20060703
  Transmission Date: 20061208
  Serious: Yes (Hospitalization)
  Sender: FDA-Public Use
  Company Number: 2006CG01148

PATIENT
  Age: 40 Year
  Sex: Male
  Weight: 71 kg

DRUGS (9)
  1. NEXIUM [Suspect]
     Route: 048
     Dates: start: 20060604, end: 20060606
  2. ORBENINE [Suspect]
     Route: 042
     Dates: start: 20060529, end: 20060606
  3. TERCIAN [Suspect]
     Indication: AGITATION
     Route: 048
     Dates: start: 20060602
  4. UMULINE [Suspect]
     Route: 058
     Dates: start: 20060531
  5. HYPNOVEL [Suspect]
     Indication: SEDATION
     Route: 042
     Dates: start: 20060529
  6. FENTANYL TRANSDERMAL SYSTEM [Suspect]
     Indication: SEDATION
     Route: 042
     Dates: start: 20060529
  7. MOPRAL [Concomitant]
     Route: 042
     Dates: start: 20060602, end: 20060604
  8. LOVENOX [Concomitant]
     Dates: start: 20060501, end: 20060602
  9. GENTAMICIN [Concomitant]
     Dates: start: 20060529, end: 20060603

REACTIONS (5)
  - HAEMATURIA [None]
  - LEUKOCYTURIA [None]
  - OESOPHAGITIS [None]
  - RASH MACULO-PAPULAR [None]
  - RENAL FAILURE [None]
